FAERS Safety Report 23025873 (Version 2)
Quarter: 2023Q4

REPORT INFORMATION
  Report Type: Spontaneous
  Country: US (occurrence: US)
  Receive Date: 20231004
  Receipt Date: 20231005
  Transmission Date: 20240110
  Serious: Yes (Hospitalization)
  Sender: FDA-Public Use
  Company Number: US-BEH-2023163638

PATIENT
  Age: 52 Year
  Sex: Female
  Weight: 200 kg

DRUGS (3)
  1. HAEGARDA [Suspect]
     Active Substance: HUMAN C1-ESTERASE INHIBITOR
     Indication: Hereditary angioedema
     Dosage: 2000 INTERNATIONAL UNIT, BIW
     Route: 058
     Dates: start: 202105
  2. HAEGARDA [Suspect]
     Active Substance: HUMAN C1-ESTERASE INHIBITOR
     Indication: Prophylaxis
     Dosage: 5000 INTERNATIONAL UNIT/KILOGRAM
     Route: 065
  3. HAEGARDA [Suspect]
     Active Substance: HUMAN C1-ESTERASE INHIBITOR
     Indication: Hereditary angioedema
     Dosage: 1 DOSAGE FORM
     Route: 065

REACTIONS (5)
  - Hereditary angioedema [Unknown]
  - Road traffic accident [Unknown]
  - No adverse event [Unknown]
  - Off label use [Unknown]
  - Product dose omission issue [Unknown]

NARRATIVE: CASE EVENT DATE: 20230829
